FAERS Safety Report 18785123 (Version 1)
Quarter: 2021Q1

REPORT INFORMATION
  Report Type: Spontaneous
  Country: US (occurrence: US)
  Receive Date: 20210125
  Receipt Date: 20210125
  Transmission Date: 20210419
  Serious: No
  Sender: FDA-Public Use
  Company Number: US-BRECKENRIDGE PHARMACEUTICAL, INC.-2105782

PATIENT
  Age: 66 Year
  Sex: Female

DRUGS (6)
  1. LEVOTHYROXINE. [Concomitant]
     Active Substance: LEVOTHYROXINE
  2. FENTANYL. [Concomitant]
     Active Substance: FENTANYL
  3. DULOXETINE. [Suspect]
     Active Substance: DULOXETINE
     Indication: NEUROPATHY PERIPHERAL
     Route: 048
  4. LISINOPRIL. [Concomitant]
     Active Substance: LISINOPRIL
  5. HYDROCHLOROTHIAZIDE. [Concomitant]
     Active Substance: HYDROCHLOROTHIAZIDE
  6. OSPHENA [Concomitant]
     Active Substance: OSPEMIFENE

REACTIONS (10)
  - Feeling hot [None]
  - Feeling cold [None]
  - Nervousness [None]
  - Pain [None]
  - Nightmare [None]
  - Contusion [None]
  - Anger [None]
  - Dry mouth [None]
  - Headache [None]
  - Gait disturbance [None]
